FAERS Safety Report 8446153 (Version 2)
Quarter: 2012Q4

REPORT INFORMATION
  Report Type: 
  Country: US (occurrence: US)
  Receive Date: 20120305
  Receipt Date: 20121015
  Transmission Date: 20130627
  Serious: No
  Sender: FDA-Public Use
  Company Number: US-PFIZER INC-2012056937

PATIENT
  Age: 74 Year
  Sex: Female
  Weight: 49.43 kg

DRUGS (9)
  1. CHANTIX [Suspect]
     Indication: SMOKING CESSATION THERAPY
     Dosage: 0.5 mg, 1x/day
     Route: 048
     Dates: start: 201106, end: 201107
  2. CHANTIX [Suspect]
     Dosage: 0.5 mg, 1x/day
     Route: 048
     Dates: start: 201111, end: 201201
  3. CHANTIX [Suspect]
     Dosage: UNK
     Route: 048
     Dates: start: 20120130, end: 2012
  4. CHANTIX [Suspect]
     Dosage: 1 mg, 2x/day
     Route: 048
     Dates: start: 2012, end: 20120229
  5. ENVAS [Concomitant]
     Indication: HYPERTENSION
     Dosage: UNK
  6. LISINOPRIL [Concomitant]
     Indication: HYPERTENSION
     Dosage: UNK
  7. SPIRIVA [Concomitant]
     Indication: RESPIRATORY DISORDER
     Dosage: UNK
  8. COMBIVENT [Concomitant]
     Indication: RESPIRATORY DISORDER
     Dosage: UNK
  9. ADVAIR [Concomitant]
     Indication: RESPIRATORY DISORDER
     Dosage: UNK

REACTIONS (1)
  - Vomiting [Unknown]
